FAERS Safety Report 20097652 (Version 2)
Quarter: 2021Q4

REPORT INFORMATION
  Report Type: Report from Study
  Country: GB (occurrence: GB)
  Receive Date: 20211122
  Receipt Date: 20211203
  Transmission Date: 20220303
  Serious: Yes (Other)
  Sender: FDA-Public Use
  Company Number: GB-SAMSUNG BIOEPIS-SB-2021-25761

PATIENT
  Age: 55 Year
  Sex: Male

DRUGS (2)
  1. METHOTREXATE SODIUM [Suspect]
     Active Substance: METHOTREXATE SODIUM
     Dosage: UNK
     Route: 065
  2. IMRALDI [Suspect]
     Active Substance: ADALIMUMAB
     Indication: Psoriatic arthropathy
     Dosage: 40 MG EVERY OTHER WEEK (2 WEEKLY)
     Route: 058
     Dates: start: 20211014

REACTIONS (9)
  - Pneumonia [Not Recovered/Not Resolved]
  - Feeling abnormal [Unknown]
  - Ill-defined disorder [Unknown]
  - Sleep paralysis [Unknown]
  - Hypoaesthesia [Unknown]
  - Fatigue [Unknown]
  - Disorientation [Unknown]
  - Peripheral coldness [Unknown]
  - Ageusia [Unknown]
